FAERS Safety Report 25157705 (Version 1)
Quarter: 2025Q2

REPORT INFORMATION
  Report Type: Spontaneous
  Country: US (occurrence: US)
  Receive Date: 20250403
  Receipt Date: 20250403
  Transmission Date: 20250717
  Serious: Yes (Other)
  Sender: BRISTOL MYERS SQUIBB
  Company Number: US-BRISTOL-MYERS SQUIBB COMPANY-2025-044448

PATIENT
  Age: 77 Year
  Sex: Male
  Weight: 75.3 kg

DRUGS (1)
  1. POMALYST [Suspect]
     Active Substance: POMALIDOMIDE
     Indication: Plasma cell myeloma

REACTIONS (4)
  - Oral infection [Recovering/Resolving]
  - Speech disorder [Recovering/Resolving]
  - Loss of consciousness [Recovering/Resolving]
  - Dyskinesia [Recovering/Resolving]
